FAERS Safety Report 8176367-8 (Version None)
Quarter: 2012Q1

REPORT INFORMATION
  Report Type: 
  Country: None (occurrence: None)
  Receive Date: 20120301
  Receipt Date: 20120224
  Transmission Date: 20120608
  Serious: Yes (Hospitalization)
  Sender: FDA-Public Use
  Company Number: TW-ABBOTT-12P-153-0908865-00

PATIENT
  Sex: Male

DRUGS (1)
  1. HUMIRA [Suspect]
     Indication: RHEUMATOID ARTHRITIS
     Dates: end: 20120101

REACTIONS (2)
  - TUBERCULOSIS GASTROINTESTINAL [None]
  - INTESTINAL HAEMORRHAGE [None]
